FAERS Safety Report 19661113 (Version 1)
Quarter: 2021Q3

REPORT INFORMATION
  Report Type: Spontaneous
  Country: US (occurrence: US)
  Receive Date: 20210805
  Receipt Date: 20210805
  Transmission Date: 20211014
  Serious: No
  Sender: FDA-Public Use
  Company Number: US-GLENMARK PHARMACEUTICALS-2021GMK051931

PATIENT

DRUGS (1)
  1. ADAPALENE. [Suspect]
     Active Substance: ADAPALENE
     Indication: ACNE
     Dosage: UNK
     Route: 065
     Dates: start: 20210118, end: 20210119

REACTIONS (7)
  - Swelling face [Recovering/Resolving]
  - Erythema [Recovering/Resolving]
  - Nasal dryness [Recovering/Resolving]
  - Eye swelling [Recovering/Resolving]
  - Scab [Recovering/Resolving]
  - Ocular hyperaemia [Recovering/Resolving]
  - Rash [Recovering/Resolving]
